FAERS Safety Report 5625278-8 (Version None)
Quarter: 2008Q1

REPORT INFORMATION
  Report Type: 
  Country: None (occurrence: None)
  Receive Date: 20080208
  Receipt Date: 20080201
  Transmission Date: 20080703
  Serious: Yes (Death, Hospitalization)
  Sender: FDA-Public Use
  Company Number: 2008SP001911

PATIENT
  Age: 58 Year
  Sex: Male

DRUGS (2)
  1. TEMODAL [Suspect]
     Indication: GLIOBLASTOMA
     Dosage: 120 MG;QD;PO
     Route: 048
     Dates: start: 20071201, end: 20071228
  2. CORTISONE [Concomitant]

REACTIONS (1)
  - PANCYTOPENIA [None]
